FAERS Safety Report 13599434 (Version 2)
Quarter: 2017Q2

REPORT INFORMATION
  Report Type: Report from Study
  Country: US (occurrence: US)
  Receive Date: 20170531
  Receipt Date: 20170607
  Transmission Date: 20170830
  Serious: Yes (Death, Hospitalization)
  Sender: FDA-Public Use
  Company Number: US-ACTELION-A-US2017-154634

PATIENT
  Age: 41 Year
  Sex: Female

DRUGS (1)
  1. OPSUMIT [Suspect]
     Active Substance: MACITENTAN
     Indication: PRODUCT USED FOR UNKNOWN INDICATION
     Route: 048

REACTIONS (9)
  - Acute myocardial infarction [Fatal]
  - Cardiogenic shock [Fatal]
  - Septic shock [Fatal]
  - Systemic lupus erythematosus [Fatal]
  - CREST syndrome [Fatal]
  - Multiple organ dysfunction syndrome [Fatal]
  - Hypoxic-ischaemic encephalopathy [Fatal]
  - Lactic acidosis [Fatal]
  - Acute kidney injury [Fatal]
